FAERS Safety Report 4862403-0 (Version None)
Quarter: 2005Q4

REPORT INFORMATION
  Report Type: 
  Country: None (occurrence: None)
  Receive Date: 20051129
  Receipt Date: 20050901
  Transmission Date: 20060501
  Serious: No
  Sender: FDA-Public Use
  Company Number: WAES0509USA00270

PATIENT
  Age: 54 Year
  Sex: Female

DRUGS (6)
  1. ZETIA [Suspect]
     Indication: BLOOD CHOLESTEROL INCREASED
     Dosage: 10 MG DAILY PO
     Route: 048
     Dates: start: 20050501, end: 20050815
  2. CATAPRES [Concomitant]
  3. ESTRACE [Concomitant]
  4. LEVOXYL [Concomitant]
  5. LIDODERM [Concomitant]
  6. VICODIN [Concomitant]

REACTIONS (2)
  - HAIR DISORDER [None]
  - ONYCHOCLASIS [None]
